FAERS Safety Report 13381866 (Version 1)
Quarter: 2017Q1

REPORT INFORMATION
  Report Type: Spontaneous
  Country: US (occurrence: US)
  Receive Date: 20170329
  Receipt Date: 20170329
  Transmission Date: 20170429
  Serious: Yes (Hospitalization)
  Sender: FDA-Public Use
  Company Number: None

PATIENT
  Age: 49 Year
  Sex: Female
  Weight: 58.5 kg

DRUGS (2)
  1. CYTOXAN [Suspect]
     Active Substance: CYCLOPHOSPHAMIDE
     Dosage: FOLLOW UP NOTES - TREATING PHYSICIAN DOES NOT THINK THE PT^S STUDY DRUGS (CYTOXAN AND PEMBROLIZUMAB) ARE RELATED TO THE PT^S DISEASE PROGRESSION.
  2. PEMBROLIZUMAB. [Suspect]
     Active Substance: PEMBROLIZUMAB

REACTIONS (1)
  - Seizure [None]

NARRATIVE: CASE EVENT DATE: 20170323
